FAERS Safety Report 6453387-2 (Version None)
Quarter: 2009Q4

REPORT INFORMATION
  Report Type: 
  Country: None (occurrence: None)
  Receive Date: 20091124
  Receipt Date: 20091106
  Transmission Date: 20100525
  Serious: No
  Sender: FDA-Public Use
  Company Number: US-ROCHE-667601

PATIENT
  Age: 3 Year
  Sex: Female

DRUGS (2)
  1. TAMIFLU [Suspect]
     Dosage: ROUTE: QA
     Route: 050
  2. ACETAMINOPHEN [Concomitant]

REACTIONS (1)
  - DRUG DOSE OMISSION [None]
